FAERS Safety Report 8959967 (Version 1)
Quarter: 2012Q4

REPORT INFORMATION
  Report Type: 
  Country: CA (occurrence: CA)
  Receive Date: 20121212
  Receipt Date: 20121212
  Transmission Date: 20130627
  Serious: Yes (Other)
  Sender: FDA-Public Use
  Company Number: CA-ROCHE-1166717

PATIENT
  Sex: Female

DRUGS (1)
  1. XOLAIR [Suspect]
     Indication: PRODUCT USED FOR UNKNOWN INDICATION
     Route: 065
     Dates: start: 20061201

REACTIONS (8)
  - Hypersensitivity [Unknown]
  - Fungal infection [Unknown]
  - Alopecia [Unknown]
  - Dry mouth [Unknown]
  - Dry skin [Unknown]
  - Influenza [Unknown]
  - Cough [Unknown]
  - Fatigue [Unknown]
